FAERS Safety Report 10370534 (Version 2)
Quarter: 2014Q3

REPORT INFORMATION
  Report Type: Spontaneous
  Country: US (occurrence: None)
  Receive Date: 20140729
  Receipt Date: 20140807
  Transmission Date: 20150326
  Serious: Yes (Hospitalization, Disabling, Other)
  Sender: FDA-Public Use
  Company Number: 003-209

PATIENT
  Sex: Female

DRUGS (1)
  1. CROFAB [Suspect]
     Active Substance: CROTALIDAE POLYVALENT IMMUNE FAB (OVINE)
     Indication: SNAKE BITE
     Dosage: 9 VIALS TOTAL
     Dates: start: 201407

REACTIONS (7)
  - Local swelling [None]
  - Hypoaesthesia [None]
  - Skin discolouration [None]
  - Swelling [None]
  - Exposure during pregnancy [None]
  - Toe amputation [None]
  - Soft tissue disorder [None]

NARRATIVE: CASE EVENT DATE: 201407
